FAERS Safety Report 9675104 (Version 1)
Quarter: 2013Q4

REPORT INFORMATION
  Report Type: Report from Study
  Country: RU (occurrence: RU)
  Receive Date: 20131107
  Receipt Date: 20131107
  Transmission Date: 20140711
  Serious: Yes (Death)
  Sender: FDA-Public Use
  Company Number: RU-SA-2013SA111843

PATIENT
  Age: 68 Year
  Sex: Male

DRUGS (5)
  1. PLAVIX [Suspect]
     Indication: THROMBOSIS PROPHYLAXIS
     Route: 048
     Dates: start: 201212, end: 20131003
  2. WARFARIN SODIUM [Concomitant]
     Indication: THROMBOSIS PROPHYLAXIS
     Route: 048
     Dates: start: 201212, end: 20131003
  3. LORISTA [Concomitant]
     Indication: HYPERTENSION
     Route: 048
     Dates: end: 20131003
  4. DIACARB [Concomitant]
     Indication: CARDIAC FAILURE
     Dosage: STRENGTH: 250 MG
     Route: 048
     Dates: end: 20131003
  5. VERAPAMIL [Concomitant]
     Indication: PROPHYLAXIS
     Dosage: STRENGTH: 2.5 MG
     Route: 048
     Dates: end: 20131003

REACTIONS (5)
  - Myocardial infarction [Fatal]
  - Cardiac failure [Fatal]
  - Arrhythmia [Fatal]
  - Hypertension [Fatal]
  - Type 2 diabetes mellitus [Fatal]
